FAERS Safety Report 4821517-1 (Version None)
Quarter: 2005Q4

REPORT INFORMATION
  Report Type: 
  Country: None (occurrence: None)
  Receive Date: 20051104
  Receipt Date: 20051026
  Transmission Date: 20060501
  Serious: Yes (Other)
  Sender: FDA-Public Use
  Company Number: 2005AP000803

PATIENT
  Age: 6 Month
  Sex: Male
  Weight: 7.8926 kg

DRUGS (2)
  1. CIPROFLOXACIN [Suspect]
     Indication: EYE INFECTION
     Dosage: 2 GTT;TID;OPH
     Route: 047
     Dates: start: 20050809, end: 20050830
  2. OFLOXACIN [Suspect]
     Indication: EYE INFECTION
     Dosage: OPH
     Route: 047
     Dates: start: 20050830, end: 20050901

REACTIONS (5)
  - DIARRHOEA [None]
  - DRUG EFFECT DECREASED [None]
  - HAEMATOCHEZIA [None]
  - RASH GENERALISED [None]
  - TREATMENT NONCOMPLIANCE [None]
